FAERS Safety Report 5859723-X (Version None)
Quarter: 2008Q4

REPORT INFORMATION
  Report Type: 
  Country: None (occurrence: None)
  Receive Date: 20080827
  Receipt Date: 20080818
  Transmission Date: 20090506
  Serious: Yes (Life-Threatening, Hospitalization)
  Sender: FDA-Public Use
  Company Number: US-ABBOTT-08P-163-0471322-00

PATIENT
  Sex: Male
  Weight: 82.628 kg

DRUGS (7)
  1. RITONAVIR SOFT GELATIN CAPSULES [Suspect]
     Indication: HIV INFECTION
     Route: 048
     Dates: start: 20070917, end: 20080126
  2. RITONAVIR SOFT GELATIN CAPSULES [Suspect]
     Dates: start: 20080218
  3. ATAZANAVIR SULFATE [Concomitant]
     Indication: HIV INFECTION
     Route: 048
     Dates: start: 20070917, end: 20080126
  4. ATAZANAVIR SULFATE [Concomitant]
     Dates: start: 20080218
  5. RALTEGRAVIR [Suspect]
     Indication: HIV INFECTION
     Route: 048
     Dates: start: 20070917, end: 20080126
  6. RALTEGRAVIR [Suspect]
     Dates: start: 20080218
  7. ETRAVIRINE [Suspect]
     Indication: HIV INFECTION
     Route: 048
     Dates: start: 20070917, end: 20080126

REACTIONS (1)
  - HEPATITIS ACUTE [None]
